FAERS Safety Report 23261610 (Version 1)
Quarter: 2023Q4

REPORT INFORMATION
  Report Type: Spontaneous
  Country: US (occurrence: US)
  Receive Date: 20231205
  Receipt Date: 20231205
  Transmission Date: 20240109
  Serious: No
  Sender: FDA-Public Use
  Company Number: US-SANDOZ-SDZ2023US062653

PATIENT
  Sex: Male

DRUGS (3)
  1. EXELON [Suspect]
     Active Substance: RIVASTIGMINE TARTRATE
     Indication: Product used for unknown indication
     Dosage: 9 MG
     Route: 065
  2. RIVASTIGMINE [Suspect]
     Active Substance: RIVASTIGMINE
     Dosage: 13 MG
     Route: 065
  3. RIVASTIGMINE [Suspect]
     Active Substance: RIVASTIGMINE
     Indication: Product used for unknown indication
     Dosage: 6 MG, BID
     Route: 065

REACTIONS (5)
  - Diarrhoea [Unknown]
  - Confusional state [Unknown]
  - Drug ineffective [Unknown]
  - Infrequent bowel movements [Unknown]
  - Grip strength [Unknown]
